FAERS Safety Report 6889599-3 (Version None)
Quarter: 2010Q3

REPORT INFORMATION
  Report Type: 
  Country: None (occurrence: None)
  Receive Date: 20100730
  Receipt Date: 20080319
  Transmission Date: 20110219
  Serious: No
  Sender: FDA-Public Use
  Company Number: US-PFIZER INC-2008025850

PATIENT
  Sex: Male
  Weight: 65.909 kg

DRUGS (5)
  1. LIPITOR [Suspect]
     Indication: BLOOD CHOLESTEROL INCREASED
     Dates: start: 20020601, end: 20080314
  2. ZETIA [Suspect]
     Dosage: 10MG QD EVERY DAY TDD:10MG
     Dates: start: 20080101
  3. NEXIUM [Concomitant]
  4. ASPIRIN [Concomitant]
  5. COLACE [Concomitant]

REACTIONS (5)
  - DIARRHOEA [None]
  - DIZZINESS [None]
  - HEADACHE [None]
  - MALAISE [None]
  - MYALGIA [None]
